FAERS Safety Report 8209177-3 (Version None)
Quarter: 2012Q1

REPORT INFORMATION
  Report Type: 
  Country: None (occurrence: None)
  Receive Date: 20120314
  Receipt Date: 20120305
  Transmission Date: 20120608
  Serious: Yes (Hospitalization, Other)
  Sender: FDA-Public Use
  Company Number: US-BAYER-2011-061719

PATIENT
  Age: 32 Year
  Sex: Female
  Weight: 149 kg

DRUGS (13)
  1. YASMIN [Suspect]
     Indication: CONTRACEPTION
     Dosage: UNK
     Dates: start: 20090820, end: 20090829
  2. LEVOXYL [Concomitant]
     Indication: HYPOTHYROIDISM
     Dosage: UNK
     Dates: start: 20050701
  3. VALTREX [Concomitant]
     Indication: HERPES VIRUS INFECTION
     Dosage: UNK
     Dates: start: 20050101, end: 20090101
  4. CIPROFLOXACIN [Concomitant]
     Dosage: UNK
     Dates: start: 20090720
  5. ZYRTEC [Concomitant]
     Indication: HYPERSENSITIVITY
     Dosage: UNK
     Dates: start: 20090801
  6. YAZ [Suspect]
     Indication: CONTRACEPTION
     Dosage: UNK
     Dates: start: 20080716, end: 20090417
  7. NAPROXEN [Concomitant]
     Indication: PAIN
     Dosage: UNK
     Dates: start: 20090801
  8. YASMIN [Suspect]
     Indication: CYST
  9. YAZ [Suspect]
     Indication: CYST
  10. DROSPIRENONE AND ETHINYL ESTRADIOL [Suspect]
     Indication: CONTRACEPTION
     Dosage: UNK
     Dates: start: 20090429, end: 20090819
  11. DROSPIRENONE AND ETHINYL ESTRADIOL [Suspect]
     Indication: CYST
  12. NAPROXEN [Concomitant]
     Indication: HEADACHE
  13. CLOTRIMAZOLE W/BETAMETHASONE DIPROPIONAT [Concomitant]
     Dosage: UNK
     Dates: start: 20090720

REACTIONS (8)
  - STRESS [None]
  - PULMONARY EMBOLISM [None]
  - DEEP VEIN THROMBOSIS [None]
  - EMOTIONAL DISTRESS [None]
  - NAUSEA [None]
  - CHEST PAIN [None]
  - CONVULSION [None]
  - ANXIETY [None]
